FAERS Safety Report 6533226-1 (Version None)
Quarter: 2010Q1

REPORT INFORMATION
  Report Type: 
  Country: None (occurrence: None)
  Receive Date: 20100111
  Receipt Date: 20100104
  Transmission Date: 20100710
  Serious: Yes (Other)
  Sender: FDA-Public Use
  Company Number: US-JNJFOC-20100101360

PATIENT
  Sex: Female
  Weight: 62.6 kg

DRUGS (1)
  1. FENTANYL [Suspect]
     Indication: PAIN
     Dosage: NDC# 0781-7111-55
     Route: 062

REACTIONS (5)
  - ABNORMAL LOSS OF WEIGHT [None]
  - APPLICATION SITE REACTION [None]
  - HYPERTENSION [None]
  - LUNG NEOPLASM MALIGNANT [None]
  - PRODUCT QUALITY ISSUE [None]
